FAERS Safety Report 26191968 (Version 1)
Quarter: 2025Q4

REPORT INFORMATION
  Report Type: Spontaneous
  Country: BR (occurrence: BR)
  Receive Date: 20251223
  Receipt Date: 20251223
  Transmission Date: 20260118
  Serious: Yes (Other)
  Sender: NOVO NORDISK
  Company Number: BR-NOVOPROD-1587020

PATIENT
  Sex: Male

DRUGS (2)
  1. INSULIN HUMAN [Suspect]
     Active Substance: INSULIN HUMAN
     Indication: Type 2 diabetes mellitus
     Dosage: 42 IU IN THE MORNING AND 30 IU IN THE AFTERNOON IF BLOOD GLUCOSE WAS HIGH
  2. INSULIN HUMAN [Suspect]
     Active Substance: INSULIN HUMAN
     Indication: Type 2 diabetes mellitus
     Dosage: 18 IU IN THE MORNING AND, IF IT WAS VERY HIGH, THEY ADDED 5 IU THAT DAY

REACTIONS (1)
  - Revascularisation procedure [Unknown]

NARRATIVE: CASE EVENT DATE: 20250701
